FAERS Safety Report 7486661-1 (Version None)
Quarter: 2011Q2

REPORT INFORMATION
  Report Type: 
  Country: None (occurrence: None)
  Receive Date: 20110517
  Receipt Date: 20100726
  Transmission Date: 20111010
  Serious: No
  Sender: FDA-Public Use
  Company Number: US-NOVEN-ALL1-2010-04002

PATIENT

DRUGS (2)
  1. DAYTRANA [Suspect]
     Dosage: 15 MG ON CAMP DAYS
     Route: 062
     Dates: start: 20100720
  2. ENBREL [Concomitant]
     Dosage: 50 MG, 1X/WEEK
     Route: 030
     Dates: start: 20081201

REACTIONS (2)
  - LETHARGY [None]
  - FATIGUE [None]
